FAERS Safety Report 8050198-1 (Version None)
Quarter: 2012Q1

REPORT INFORMATION
  Report Type: 
  Country: None (occurrence: None)
  Receive Date: 20120117
  Receipt Date: 20120109
  Transmission Date: 20120608
  Serious: Yes (Hospitalization)
  Sender: FDA-Public Use
  Company Number: US-BAYER-2011-037255

PATIENT
  Age: 42 Year
  Sex: Female
  Weight: 65.76 kg

DRUGS (10)
  1. VITAMIN C [Concomitant]
  2. YAZ [Suspect]
     Indication: PREMENSTRUAL SYNDROME
  3. MULTI-VITAMIN [Concomitant]
  4. OMEGA 3-6-9 [Concomitant]
  5. YAZ [Suspect]
     Indication: CONTRACEPTION
     Dosage: UNK, QD
     Route: 048
     Dates: start: 20080801, end: 20090301
  6. MOTRIN [Concomitant]
  7. CYTOMEL [Concomitant]
  8. LEVOTHYROXINE SODIUM [Concomitant]
  9. VITAMIN D [Concomitant]
  10. PRILOSEC [Concomitant]

REACTIONS (6)
  - DEEP VEIN THROMBOSIS [None]
  - THROMBOSIS [None]
  - ANXIETY [None]
  - PULMONARY EMBOLISM [None]
  - ANHEDONIA [None]
  - PAIN [None]
